FAERS Safety Report 23392375 (Version 1)
Quarter: 2024Q1

REPORT INFORMATION
  Report Type: Spontaneous
  Country: US (occurrence: US)
  Receive Date: 20240111
  Receipt Date: 20240111
  Transmission Date: 20240410
  Serious: No
  Sender: FDA-Public Use
  Company Number: US-REGENERON PHARMACEUTICALS, INC.-2023-083666

PATIENT
  Sex: Female

DRUGS (3)
  1. EYLEA [Suspect]
     Active Substance: AFLIBERCEPT
     Indication: Neovascular age-related macular degeneration
     Dosage: FORMULATION: UNKNOWN
  2. LUCENTIS [Concomitant]
     Active Substance: RANIBIZUMAB
     Indication: Product used for unknown indication
  3. VABYSMO [Concomitant]
     Active Substance: FARICIMAB\FARICIMAB-SVOA
     Indication: Product used for unknown indication

REACTIONS (2)
  - Adverse event [Unknown]
  - Drug ineffective [Unknown]
